FAERS Safety Report 8181274 (Version 2)
Quarter: 2012Q4

REPORT INFORMATION
  Report Type: 
  Country: US (occurrence: US)
  Receive Date: 20111014
  Receipt Date: 20121003
  Transmission Date: 20130627
  Serious: Yes (Other)
  Sender: FDA-Public Use
  Company Number: US-US-EMD SERONO, INC.-7087205

PATIENT
  Age: 45 None
  Sex: Female
  Weight: 72 kg

DRUGS (1)
  1. REBIF [Suspect]
     Indication: MULTIPLE SCLEROSIS
     Route: 058
     Dates: start: 20060405

REACTIONS (4)
  - Nephrolithiasis [Unknown]
  - Urinary tract infection [Unknown]
  - Urinary retention [Unknown]
  - Injection site pain [Unknown]
